FAERS Safety Report 8852359 (Version 1)
Quarter: 2012Q4

REPORT INFORMATION
  Report Type: Spontaneous
  Country: DE (occurrence: None)
  Receive Date: 20121017
  Receipt Date: 20121017
  Transmission Date: 20130627
  Serious: No
  Sender: FDA-Public Use
  Company Number: 1210DEU005188

PATIENT
  Age: 50 Year
  Sex: Female

DRUGS (1)
  1. KEIMAX [Suspect]
     Indication: LARYNGITIS
     Route: 048
     Dates: start: 20121009, end: 20121009

REACTIONS (3)
  - Rash pustular [None]
  - Rash [None]
  - Pruritus [None]
